FAERS Safety Report 4436986-9 (Version None)
Quarter: 2004Q3

REPORT INFORMATION
  Report Type: 
  Country: None (occurrence: None)
  Receive Date: 20040830
  Receipt Date: 20040326
  Transmission Date: 20050211
  Serious: No
  Sender: FDA-Public Use
  Company Number: US-GLAXOSMITHKLINE-A0504806A

PATIENT
  Sex: Female

DRUGS (5)
  1. BECONASE [Suspect]
     Route: 045
     Dates: start: 19810101, end: 19840101
  2. VANCENASE [Suspect]
     Route: 045
  3. NASALIDE [Suspect]
     Route: 065
  4. CORTISONE SHOT [Concomitant]
  5. STEROID [Concomitant]
     Route: 061

REACTIONS (3)
  - CUSHING'S SYNDROME [None]
  - CUSHINGOID [None]
  - DEPRESSION [None]
